FAERS Safety Report 5950843-8 (Version None)
Quarter: 2008Q4

REPORT INFORMATION
  Report Type: 
  Country: None (occurrence: None)
  Receive Date: 20081110
  Receipt Date: 20081028
  Transmission Date: 20090506
  Serious: Yes (Death)
  Sender: FDA-Public Use
  Company Number: A-JP2008-22511

PATIENT
  Age: 68 Year
  Sex: Female
  Weight: 72 kg

DRUGS (13)
  1. TRACLEER [Suspect]
     Indication: PULMONARY ARTERIAL HYPERTENSION
     Dosage: 125 MG, BID, ORAL
     Route: 048
     Dates: start: 20050706, end: 20080105
  2. BERAPROST SODIUM(BERAPROST SODIUM) [Suspect]
  3. WARFARIN POTASSIUM(WARFARIN POTASSIUM) [Suspect]
  4. FUROSEMIDE [Concomitant]
  5. ASPARTATE POTASSIUM (ASPARTATE POTASSIUM) [Concomitant]
  6. TULOBUTEROL (TULOBUTEROL) [Concomitant]
  7. LANSOPRAZOLE [Concomitant]
  8. PREDNISONE [Concomitant]
  9. SALBUTAMOL SULFATE (SALBUTAMOL SULFATE) [Concomitant]
  10. FLUTICASONE PROPIONATE [Concomitant]
  11. SALMETEROL XINAFOATE (SALMETEROL XINAFOATE) [Concomitant]
  12. SUCRALFATE [Concomitant]
  13. OXYGEN (OXYGEN) [Concomitant]

REACTIONS (7)
  - ACUTE RIGHT VENTRICULAR FAILURE [None]
  - CONDITION AGGRAVATED [None]
  - COR PULMONALE [None]
  - DISEASE PROGRESSION [None]
  - IRON DEFICIENCY ANAEMIA [None]
  - NECK PAIN [None]
  - PULMONARY ARTERIAL HYPERTENSION [None]
